FAERS Safety Report 7518602-2 (Version None)
Quarter: 2011Q2

REPORT INFORMATION
  Report Type: 
  Country: None (occurrence: None)
  Receive Date: 20110601
  Receipt Date: 20110601
  Transmission Date: 20111010
  Serious: Yes (Other)
  Sender: FDA-Public Use
  Company Number: None

PATIENT
  Age: 60 Year
  Sex: Female
  Weight: 56.246 kg

DRUGS (8)
  1. SPIRONOLACTONE [Concomitant]
  2. TEMAZEPAM [Concomitant]
  3. CYMBALTA [Concomitant]
  4. LEVOXYL [Concomitant]
  5. TIZANIDINE HCL [Concomitant]
  6. OXYCODONE/APA [Concomitant]
  7. MECLIZINE [Suspect]
     Indication: VERTIGO
     Dosage: 1 TABLET 3 TIMES DAY PO
     Route: 048
     Dates: start: 20110525, end: 20110526
  8. MECLIZINE [Suspect]
     Indication: VERTIGO POSITIONAL
     Dosage: 1 TABLET 3 TIMES DAY PO
     Route: 048
     Dates: start: 20110525, end: 20110526

REACTIONS (1)
  - NIGHTMARE [None]
